FAERS Safety Report 6732654-9 (Version None)
Quarter: 2010Q2

REPORT INFORMATION
  Report Type: 
  Country: None (occurrence: None)
  Receive Date: 20100519
  Receipt Date: 20100517
  Transmission Date: 20101027
  Serious: Yes (Hospitalization)
  Sender: FDA-Public Use
  Company Number: FR-WYE-G06129410

PATIENT
  Sex: Male

DRUGS (12)
  1. IBUPROFEN (ADVIL) [Suspect]
     Dosage: UNKNOWN
     Route: 048
     Dates: start: 20090127, end: 20090201
  2. BUMEX [Suspect]
     Indication: HYPERTENSION
     Route: 048
     Dates: end: 20090201
  3. CALCIPARINE [Suspect]
     Route: 058
     Dates: start: 20090127
  4. ROCEPHIN [Suspect]
     Indication: LUNG INFECTION
     Route: 048
     Dates: start: 20090119, end: 20090201
  5. INSULATARD [Concomitant]
     Indication: TYPE 1 DIABETES MELLITUS
     Dosage: UNKNOWN
     Route: 058
  6. PRAVASTATIN SODIUM [Suspect]
     Route: 048
     Dates: end: 20090201
  7. VALSARTAN [Suspect]
     Indication: HYPERTENSION
     Route: 048
     Dates: end: 20090201
  8. ASPIRIN [Suspect]
     Indication: ARTERIOSCLEROSIS OBLITERANS
     Route: 048
     Dates: end: 20090129
  9. PLAVIX [Suspect]
     Indication: ARTERIOSCLEROSIS OBLITERANS
     Route: 048
  10. ADANCOR [Concomitant]
     Route: 048
  11. PRAXILENE [Suspect]
     Indication: ARTERIOSCLEROSIS OBLITERANS
     Route: 048
     Dates: end: 20090201
  12. LEVOFLOXACIN [Suspect]
     Indication: LUNG INFECTION
     Route: 048
     Dates: start: 20090119, end: 20090201

REACTIONS (2)
  - CIRCULATORY COLLAPSE [None]
  - GASTRIC ULCER HAEMORRHAGE [None]
